FAERS Safety Report 7424305-5 (Version None)
Quarter: 2011Q2

REPORT INFORMATION
  Report Type: 
  Country: None (occurrence: None)
  Receive Date: 20110411
  Receipt Date: 20110406
  Transmission Date: 20111010
  Serious: Yes (Hospitalization, Other)
  Sender: FDA-Public Use
  Company Number: ACO_22638_2011

PATIENT
  Age: 57 Year
  Sex: Female
  Weight: 77.1 kg

DRUGS (11)
  1. AMPYRA [Suspect]
     Indication: GAIT DISTURBANCE
     Dosage: 10 MG, Q 12 HRS, ORAL
     Route: 048
     Dates: start: 20100801, end: 20110201
  2. ASPIRIN [Concomitant]
  3. TYSABRI [Concomitant]
  4. TIZANIDINE (TIZANIDINE HYDROCHLORIDE) [Concomitant]
  5. GABAPENTIN [Concomitant]
  6. AMPYRA [Suspect]
  7. FOLIC ACID [Concomitant]
  8. AMPYRA [Suspect]
  9. AMPYRA [Suspect]
  10. SOLU-MEDROL [Concomitant]
  11. VITAMIN D [Concomitant]

REACTIONS (2)
  - GASTROENTERITIS VIRAL [None]
  - SIMPLE PARTIAL SEIZURES [None]
